FAERS Safety Report 6382230-5 (Version None)
Quarter: 2009Q3

REPORT INFORMATION
  Report Type: 
  Country: None (occurrence: None)
  Receive Date: 20090928
  Receipt Date: 20090928
  Transmission Date: 20100115
  Serious: No
  Sender: FDA-Public Use
  Company Number: None

PATIENT
  Age: 51 Year
  Sex: Female
  Weight: 56.6996 kg

DRUGS (1)
  1. ENBREL [Suspect]
     Indication: RHEUMATOID ARTHRITIS
     Dosage: 1 INJECTION 50MG PER WEEK 1 PER WEEK
     Route: 058
     Dates: start: 20070131, end: 20090623

REACTIONS (2)
  - PSORIATIC ARTHROPATHY [None]
  - PUSTULAR PSORIASIS [None]
